FAERS Safety Report 5809475-4 (Version None)
Quarter: 2008Q3

REPORT INFORMATION
  Report Type: 
  Country: None (occurrence: None)
  Receive Date: 20080715
  Receipt Date: 20080710
  Transmission Date: 20090109
  Serious: Yes (Hospitalization)
  Sender: FDA-Public Use
  Company Number: JP-BRISTOL-MYERS SQUIBB COMPANY-14258529

PATIENT
  Age: 53 Year
  Sex: Female

DRUGS (1)
  1. BRIPLATIN [Suspect]
     Route: 041

REACTIONS (4)
  - ASCITES [None]
  - DIARRHOEA [None]
  - HYPOALBUMINAEMIA [None]
  - OEDEMA PERIPHERAL [None]
